FAERS Safety Report 9797653 (Version 1)
Quarter: 2014Q1

REPORT INFORMATION
  Report Type: Spontaneous
  Country: US (occurrence: US)
  Receive Date: 20140106
  Receipt Date: 20140106
  Transmission Date: 20141002
  Serious: No
  Sender: FDA-Public Use
  Company Number: US-PFIZER INC-2014000232

PATIENT
  Age: 64 Year
  Sex: Female
  Weight: 56.69 kg

DRUGS (6)
  1. LYRICA [Suspect]
     Indication: ARTHRITIS
     Dosage: 50 MG, 2X/DAY
  2. LYRICA [Suspect]
     Dosage: 50 MG, 2X/DAY
     Dates: start: 2013
  3. NORCO [Concomitant]
     Dosage: 10/325 MG, 4X/DAY
  4. LUNESTA [Concomitant]
     Dosage: 3 MG, 1X/DAY
  5. SYNTHROID [Concomitant]
     Dosage: 0.825 UG, 1X/DAY
  6. METHOTREXATE [Concomitant]
     Indication: PSORIATIC ARTHROPATHY
     Dosage: 22.5 MG, WEEKLY

REACTIONS (2)
  - Off label use [Unknown]
  - Therapeutic response unexpected [Unknown]
